FAERS Safety Report 11002899 (Version 3)
Quarter: 2015Q2

REPORT INFORMATION
  Report Type: Report from Study
  Country: FR (occurrence: FR)
  Receive Date: 20150408
  Receipt Date: 20150617
  Transmission Date: 20150821
  Serious: Yes (Other)
  Sender: FDA-Public Use
  Company Number: FR-GILEAD-2015-0146518

PATIENT
  Age: 26 Year
  Sex: Female

DRUGS (3)
  1. EMTRICITABINE/TENOFOVIR DISOPROXIL FUMARATE [Suspect]
     Active Substance: EMTRICITABINE\TENOFOVIR DISOPROXIL
     Indication: HIV INFECTION
     Route: 065
  2. PREZISTA [Concomitant]
     Active Substance: DARUNAVIR ETHANOLATE
  3. NORVIR [Concomitant]
     Active Substance: RITONAVIR

REACTIONS (8)
  - Ureteric obstruction [Unknown]
  - Ovarian cyst [Unknown]
  - Pyelonephritis [Unknown]
  - Nephritis [Unknown]
  - Ureteric dilatation [Recovered/Resolved]
  - Unevaluable event [Unknown]
  - Renal disorder [Recovered/Resolved]
  - Pregnancy [Recovered/Resolved]

NARRATIVE: CASE EVENT DATE: 2014
